FAERS Safety Report 7242827-7 (Version None)
Quarter: 2011Q1

REPORT INFORMATION
  Report Type: 
  Country: None (occurrence: None)
  Receive Date: 20110125
  Receipt Date: 20110114
  Transmission Date: 20110831
  Serious: Yes (Hospitalization, Other)
  Sender: FDA-Public Use
  Company Number: PHEH2009US13051

PATIENT
  Sex: Male

DRUGS (6)
  1. COGENTIN [Concomitant]
     Dosage: 1.5 MG
  2. INDERAL [Concomitant]
     Dosage: 30 MG
  3. ZYPREXA [Suspect]
     Indication: SCHIZOPHRENIA, PARANOID TYPE
     Dosage: 10 MG
  4. LOVASTATIN [Concomitant]
  5. CLOZAPINE [Suspect]
  6. COLACE [Concomitant]
     Dosage: 200 MG

REACTIONS (3)
  - CONVULSION [None]
  - FEELING ABNORMAL [None]
  - SCHIZOPHRENIA [None]
